FAERS Safety Report 6808291-4 (Version None)
Quarter: 2010Q2

REPORT INFORMATION
  Report Type: 
  Country: None (occurrence: None)
  Receive Date: 20100629
  Receipt Date: 20090305
  Transmission Date: 20101027
  Serious: No
  Sender: FDA-Public Use
  Company Number: US-PFIZER INC-2009165123

PATIENT
  Sex: Male
  Weight: 81.6 kg

DRUGS (6)
  1. ZYVOX [Suspect]
     Indication: STAPHYLOCOCCAL INFECTION
     Dosage: 600 MG, 2X/DAY
     Dates: start: 20081226
  2. ZOLOFT [Concomitant]
     Dosage: UNK
  3. LIPITOR [Concomitant]
  4. NEURONTIN [Concomitant]
  5. ZOLPIDEM TARTRATE [Concomitant]
  6. NEXIUM [Concomitant]

REACTIONS (3)
  - ABDOMINAL PAIN UPPER [None]
  - DECREASED APPETITE [None]
  - NAUSEA [None]
